FAERS Safety Report 19442263 (Version 2)
Quarter: 2021Q3

REPORT INFORMATION
  Report Type: Spontaneous
  Country: NL (occurrence: NL)
  Receive Date: 20210621
  Receipt Date: 20210713
  Transmission Date: 20211014
  Serious: Yes (Hospitalization)
  Sender: FDA-Public Use
  Company Number: NL-ASTRAZENECA-2021A530735

PATIENT
  Age: 60 Year
  Sex: Male
  Weight: 89 kg

DRUGS (3)
  1. ESOMEPRAZOL [Suspect]
     Active Substance: ESOMEPRAZOLE
     Indication: REGURGITATION
     Dosage: MAAGSAPRESISTENTE CAPSULE, 40 MG (MILLIGRAM),40.0MG UNKNOWN
     Route: 048
     Dates: start: 2021
  2. ACETYLSALICYLZUUR [Concomitant]
     Active Substance: ASPIRIN
     Indication: PRODUCT USED FOR UNKNOWN INDICATION
     Dosage: TABLET, 80 MG (MILLIGRAM)
     Route: 065
  3. IRBESARTAN. [Concomitant]
     Active Substance: IRBESARTAN
     Indication: PRODUCT USED FOR UNKNOWN INDICATION
     Route: 065

REACTIONS (1)
  - Pain in extremity [Not Recovered/Not Resolved]

NARRATIVE: CASE EVENT DATE: 20210315
